FAERS Safety Report 15757920 (Version 1)
Quarter: 2018Q4

REPORT INFORMATION
  Report Type: Spontaneous
  Country: DK (occurrence: DK)
  Receive Date: 20181225
  Receipt Date: 20181225
  Transmission Date: 20190205
  Serious: Yes (Hospitalization)
  Sender: FDA-Public Use
  Company Number: DK-ACCORD-097526

PATIENT
  Age: 68 Year
  Sex: Female

DRUGS (2)
  1. NAVELBINE [Suspect]
     Active Substance: VINORELBINE TARTRATE
     Indication: CHEMOTHERAPY
     Dosage: STRENGTH: UNKNOWN DOSE: 100MG SINGLE DOSE, DOSE AGAIN AFTER 8 DAYS?AND THEN EVERY 3 WEEKS
     Route: 048
  2. CISPLATIN ACCORD [Suspect]
     Active Substance: CISPLATIN
     Indication: CHEMOTHERAPY
     Dosage: STYRKE: 1 MG/ML.
     Route: 042

REACTIONS (4)
  - Vomiting [Unknown]
  - Dehydration [Unknown]
  - Constipation [Unknown]
  - Nausea [Unknown]

NARRATIVE: CASE EVENT DATE: 201702
